FAERS Safety Report 7015308-3 (Version None)
Quarter: 2010Q3

REPORT INFORMATION
  Report Type: 
  Country: None (occurrence: None)
  Receive Date: 20100927
  Receipt Date: 20100922
  Transmission Date: 20110219
  Serious: No
  Sender: FDA-Public Use
  Company Number: US-TEVA-247786USA

PATIENT
  Sex: Male

DRUGS (8)
  1. COPAXONE [Suspect]
     Indication: MULTIPLE SCLEROSIS
     Route: 058
     Dates: start: 20100101
  2. ACETYLSALICYLIC ACID [Concomitant]
  3. DICYCLOVERINE HYDROCHLORIDE [Concomitant]
  4. LISINOPRIL [Concomitant]
  5. OMEPRAZOLE [Concomitant]
  6. INDAPAMIDE [Concomitant]
  7. SONVVIA [Concomitant]
  8. ERGOCALCIFEROL [Concomitant]

REACTIONS (2)
  - AORTIC VALVE DISEASE MIXED [None]
  - CARDIAC MURMUR [None]
